FAERS Safety Report 10329078 (Version 1)
Quarter: 2014Q3

REPORT INFORMATION
  Report Type: Spontaneous
  Country: US (occurrence: None)
  Receive Date: 20140718
  Receipt Date: 20140718
  Transmission Date: 20150326
  Serious: Yes (Other)
  Sender: FDA-Public Use
  Company Number: None

PATIENT
  Age: 31 Year
  Sex: Female
  Weight: 60.6 kg

DRUGS (4)
  1. VANCOMYCIN [Suspect]
     Active Substance: VANCOMYCIN
     Indication: WOUND TREATMENT
     Dosage: 1250 MG LOAD, THEN 1000MG BID, IV.
     Route: 042
     Dates: start: 20140528, end: 20140529
  2. IBUPROFEN. [Concomitant]
     Active Substance: IBUPROFEN
  3. ENOXAPARIN [Concomitant]
     Active Substance: ENOXAPARIN
  4. WARFARIN [Concomitant]
     Active Substance: WARFARIN

REACTIONS (4)
  - Pruritus [None]
  - Erythema [None]
  - Drug hypersensitivity [None]
  - Red man syndrome [None]

NARRATIVE: CASE EVENT DATE: 20140529
